FAERS Safety Report 8323182-8 (Version None)
Quarter: 2012Q2

REPORT INFORMATION
  Report Type: 
  Country: None (occurrence: None)
  Receive Date: 20120430
  Receipt Date: 20120416
  Transmission Date: 20120825
  Serious: Yes (Other)
  Sender: FDA-Public Use
  Company Number: NL-MEDIMMUNE-MEDI-0014880

PATIENT
  Sex: Male
  Weight: 8.77 kg

DRUGS (5)
  1. SYNAGIS [Suspect]
     Indication: HEART DISEASE CONGENITAL
     Route: 030
     Dates: start: 20111003, end: 20120125
  2. FUROSEMIDE [Concomitant]
  3. OTOSPORIN [Concomitant]
     Dates: start: 20120101, end: 20120101
  4. ESOMEPRAZOLE SODIUM [Concomitant]
  5. POTASSIUM CANRENOATE [Concomitant]

REACTIONS (5)
  - PYREXIA [None]
  - NASOPHARYNGITIS [None]
  - EAR INFECTION [None]
  - CATHETERISATION CARDIAC [None]
  - COUGH [None]
